FAERS Safety Report 5280563-7 (Version None)
Quarter: 2007Q1

REPORT INFORMATION
  Report Type: 
  Country: None (occurrence: None)
  Receive Date: 20070329
  Receipt Date: 20070312
  Transmission Date: 20070707
  Serious: Yes (Other)
  Sender: FDA-Public Use
  Company Number: US-SANOFI-SYNTHELABO-A03200702313

PATIENT
  Sex: Female

DRUGS (3)
  1. ELAVIL [Concomitant]
     Indication: PAIN
     Dosage: UNK
     Route: 065
  2. ELAVIL [Concomitant]
     Indication: SLEEP DISORDER
     Dosage: UNK
     Route: 065
  3. AMBIEN [Suspect]
     Indication: INSOMNIA
     Dosage: UNK
     Route: 048

REACTIONS (4)
  - ACCIDENTAL OVERDOSE [None]
  - AMNESIA [None]
  - CONFUSIONAL STATE [None]
  - SLEEP WALKING [None]
